FAERS Safety Report 25809797 (Version 1)
Quarter: 2025Q3

REPORT INFORMATION
  Report Type: Spontaneous
  Country: AU (occurrence: AU)
  Receive Date: 20250916
  Receipt Date: 20250916
  Transmission Date: 20251021
  Serious: Yes (Other)
  Sender: ASTELLAS
  Company Number: AU-ASTELLAS-2025-AER-050396

PATIENT
  Age: 83 Year
  Sex: Male

DRUGS (1)
  1. XTANDI [Suspect]
     Active Substance: ENZALUTAMIDE
     Indication: Prostate cancer
     Route: 048
     Dates: end: 20250910

REACTIONS (6)
  - Foreign body in throat [Unknown]
  - Throat irritation [Unknown]
  - Speech disorder [Unknown]
  - Productive cough [Unknown]
  - Oropharyngeal pain [Unknown]
  - Product size issue [Unknown]

NARRATIVE: CASE EVENT DATE: 20250901
